FAERS Safety Report 9187552 (Version 1)
Quarter: 2013Q1

REPORT INFORMATION
  Report Type: Spontaneous
  Country: US (occurrence: US)
  Receive Date: 20130325
  Receipt Date: 20130325
  Transmission Date: 20140127
  Serious: Yes (Other)
  Sender: FDA-Public Use
  Company Number: US-SHIRE-ALL1-2013-01738

PATIENT
  Age: 37 Year
  Sex: Female
  Weight: 54.88 kg

DRUGS (2)
  1. VYVANSE [Suspect]
     Indication: ATTENTION DEFICIT/HYPERACTIVITY DISORDER
     Dosage: 30 MG, 1X/DAY:QD
     Route: 048
     Dates: start: 20130226, end: 20130305
  2. VYVANSE [Suspect]
     Dosage: 50 MG, 1X/DAY:QD
     Route: 048
     Dates: start: 20130306

REACTIONS (13)
  - Lack of spontaneous speech [Not Recovered/Not Resolved]
  - Dysarthria [Not Recovered/Not Resolved]
  - Slow speech [Unknown]
  - Confusional state [Not Recovered/Not Resolved]
  - Head discomfort [Not Recovered/Not Resolved]
  - Heart rate abnormal [Recovering/Resolving]
  - Muscle tightness [Not Recovered/Not Resolved]
  - Chills [Not Recovered/Not Resolved]
  - Anxiety [Unknown]
  - Headache [Not Recovered/Not Resolved]
  - Somnolence [Not Recovered/Not Resolved]
  - Blood pressure increased [Recovering/Resolving]
  - Drug effect incomplete [Recovered/Resolved]
